FAERS Safety Report 9302998 (Version 2)
Quarter: 2013Q2

REPORT INFORMATION
  Report Type: Spontaneous
  Country: NZ (occurrence: NZ)
  Receive Date: 20130522
  Receipt Date: 20130618
  Transmission Date: 20140414
  Serious: Yes (Death)
  Sender: FDA-Public Use
  Company Number: NZ-PFIZER INC-2013155937

PATIENT
  Age: 44 Year
  Sex: Female
  Weight: 60 kg

DRUGS (2)
  1. CYKLOKAPRON [Suspect]
     Indication: MENORRHAGIA
     Dosage: 2 DF, 4X/DAY (PRN)
     Route: 048
     Dates: start: 20120504
  2. EFEXOR XR [Concomitant]
     Indication: DEPRESSION
     Dosage: 75MG ONE IN THE MORNING AND TWO AT NIGHT
     Route: 048
     Dates: start: 200710

REACTIONS (1)
  - Pulmonary embolism [Fatal]
